FAERS Safety Report 21920570 (Version 1)
Quarter: 2023Q1

REPORT INFORMATION
  Report Type: Spontaneous
  Country: FR (occurrence: FR)
  Receive Date: 20230127
  Receipt Date: 20230127
  Transmission Date: 20230418
  Serious: Yes (Other)
  Sender: FDA-Public Use
  Company Number: None

PATIENT
  Age: 61 Year
  Sex: Male

DRUGS (10)
  1. PROPOFOL [Suspect]
     Active Substance: PROPOFOL
     Indication: Induction and maintenance of anaesthesia
     Route: 042
     Dates: start: 20221216, end: 20221227
  2. ERYTHROMYCIN [Suspect]
     Active Substance: ERYTHROMYCIN
     Indication: Gastric hypomotility
     Route: 048
     Dates: start: 20221221
  3. KEPPRA [Suspect]
     Active Substance: LEVETIRACETAM
     Indication: Post stroke seizure
     Dosage: ROA-20053000
     Route: 048
     Dates: start: 20221215
  4. PANTOPRAZOLE [Suspect]
     Active Substance: PANTOPRAZOLE
     Indication: Prophylaxis against gastrointestinal ulcer
     Route: 042
     Dates: start: 20221215
  5. SUFENTANIL [Suspect]
     Active Substance: SUFENTANIL
     Indication: Induction and maintenance of anaesthesia
     Route: 042
     Dates: start: 20221215
  6. ATORVASTATIN [Suspect]
     Active Substance: ATORVASTATIN
     Indication: Cerebral vasoconstriction
     Route: 048
     Dates: start: 20221220, end: 20221227
  7. CISATRACURIUM [Suspect]
     Active Substance: CISATRACURIUM
     Indication: Induction and maintenance of anaesthesia
     Route: 042
     Dates: start: 20221221
  8. NIMODIPINE [Suspect]
     Active Substance: NIMODIPINE
     Indication: Cerebral vasoconstriction
     Route: 048
     Dates: start: 20221220, end: 20221230
  9. AUGMENTIN [Suspect]
     Active Substance: AMOXICILLIN\CLAVULANATE POTASSIUM
     Indication: Lung disorder
     Route: 042
     Dates: start: 20221219, end: 20221225
  10. MIDAZOLAM [Suspect]
     Active Substance: MIDAZOLAM
     Indication: Induction and maintenance of anaesthesia
     Route: 042
     Dates: start: 20221215

REACTIONS (1)
  - Mixed liver injury [Recovering/Resolving]

NARRATIVE: CASE EVENT DATE: 20221226
